FAERS Safety Report 8304314-4 (Version None)
Quarter: 2012Q2

REPORT INFORMATION
  Report Type: 
  Country: None (occurrence: None)
  Receive Date: 20120423
  Receipt Date: 20120423
  Transmission Date: 20120825
  Serious: No
  Sender: FDA-Public Use
  Company Number: None

PATIENT
  Age: 54 Year
  Sex: Female
  Weight: 64.41 kg

DRUGS (8)
  1. HYDROCHLOROTHIAZIDE [Suspect]
     Indication: HYPERTENSION
     Dosage: 12.5 MG
     Route: 048
     Dates: start: 20120326, end: 20120416
  2. BENADRYL [Concomitant]
  3. MICRONIZED PROGESTERONE [Concomitant]
  4. LISINOPRIL [Concomitant]
     Route: 048
  5. CLIMARA [Concomitant]
     Route: 062
  6. SUDAFED 12 HOUR [Concomitant]
  7. MULTI-VITAMIN [Concomitant]
  8. VITAMIN B COMPLEX CAP [Concomitant]

REACTIONS (2)
  - HYPOAESTHESIA [None]
  - RAYNAUD'S PHENOMENON [None]
